FAERS Safety Report 25226093 (Version 4)
Quarter: 2025Q2

REPORT INFORMATION
  Report Type: Report from Study
  Country: CA (occurrence: CA)
  Receive Date: 20250422
  Receipt Date: 20250617
  Transmission Date: 20250717
  Serious: Yes (Other)
  Sender: ROCHE
  Company Number: CA-002147023-NVSC2025CA008854

PATIENT
  Age: 51 Year
  Sex: Female

DRUGS (3)
  1. XOLAIR [Suspect]
     Active Substance: OMALIZUMAB
     Indication: Chronic spontaneous urticaria
     Route: 058
     Dates: start: 20241219
  2. XOLAIR [Suspect]
     Active Substance: OMALIZUMAB
     Route: 065
     Dates: start: 20250214
  3. SODIUM CHLORIDE [Concomitant]
     Active Substance: SODIUM CHLORIDE
     Indication: Product used for unknown indication
     Route: 065

REACTIONS (24)
  - Blood pressure decreased [Unknown]
  - Blood glucose increased [Unknown]
  - Dry throat [Recovered/Resolved]
  - Dysphagia [Recovered/Resolved]
  - Oropharyngeal discomfort [Recovered/Resolved]
  - Anxiety [Recovered/Resolved]
  - Malaise [Unknown]
  - Nausea [Unknown]
  - Vomiting [Unknown]
  - Abdominal pain upper [Recovering/Resolving]
  - Ulcer [Unknown]
  - Hypersensitivity [Unknown]
  - Throat tightness [Recovered/Resolved]
  - Peripheral swelling [Recovered/Resolved]
  - Swelling face [Recovering/Resolving]
  - Anaphylactic reaction [Recovered/Resolved]
  - Stress [Unknown]
  - Pharyngeal swelling [Recovering/Resolving]
  - Erythema [Recovering/Resolving]
  - Pruritus [Unknown]
  - Off label use [Unknown]
  - Tongue disorder [Recovered/Resolved]
  - Flushing [Unknown]
  - Throat irritation [Unknown]

NARRATIVE: CASE EVENT DATE: 20250214
